FAERS Safety Report 10136159 (Version 3)
Quarter: 2014Q2

REPORT INFORMATION
  Report Type: Spontaneous
  Country: US (occurrence: US)
  Receive Date: 20140429
  Receipt Date: 20140509
  Transmission Date: 20141212
  Serious: Yes (Other)
  Sender: FDA-Public Use
  Company Number: US-DRREDDYS-USA/USA/14/0039923

PATIENT
  Age: 17 Year
  Sex: Female

DRUGS (1)
  1. ZENATANE [Suspect]
     Indication: ACNE CYSTIC
     Route: 065
     Dates: start: 20140121, end: 20140422

REACTIONS (3)
  - Depression [Not Recovered/Not Resolved]
  - Mood swings [Unknown]
  - Headache [Not Recovered/Not Resolved]
